FAERS Safety Report 5357270-5 (Version None)
Quarter: 2007Q2

REPORT INFORMATION
  Report Type: 
  Country: None (occurrence: None)
  Receive Date: 20070614
  Receipt Date: 20070611
  Transmission Date: 20071010
  Serious: Yes (Hospitalization)
  Sender: FDA-Public Use
  Company Number: FR-MERCK-0706FRA00032

PATIENT
  Age: 58 Year
  Sex: Male
  Weight: 86 kg

DRUGS (17)
  1. EMEND [Suspect]
     Indication: PROPHYLAXIS OF NAUSEA AND VOMITING
     Route: 048
     Dates: start: 20070227, end: 20070228
  2. ETOPOSIDE [Suspect]
     Indication: LUNG NEOPLASM MALIGNANT
     Route: 048
     Dates: start: 20070226, end: 20070228
  3. CISPLATIN [Suspect]
     Indication: LUNG NEOPLASM MALIGNANT
     Route: 042
     Dates: start: 20070226, end: 20070226
  4. ACETAMINOPHEN [Concomitant]
     Route: 048
     Dates: start: 20061201, end: 20070306
  5. ESOMEPRAZOLE MAGNESIUM [Concomitant]
     Route: 048
     Dates: start: 20070101, end: 20070306
  6. PAROXETINE HYDROCHLORIDE [Concomitant]
     Route: 048
     Dates: start: 20070101
  7. ONDANSETRON HYDROCHLORIDE [Concomitant]
     Indication: PROPHYLAXIS OF NAUSEA AND VOMITING
     Route: 065
     Dates: start: 20070227, end: 20070301
  8. METOCLOPRAMIDE HYDROCHLORIDE [Concomitant]
     Indication: PROPHYLAXIS OF NAUSEA AND VOMITING
     Route: 042
     Dates: start: 20070227, end: 20070227
  9. METOCLOPRAMIDE HYDROCHLORIDE [Concomitant]
     Route: 048
     Dates: start: 20070228, end: 20070301
  10. METHYLPREDNISOLONE SODIUM SUCCINATE [Concomitant]
     Indication: PROPHYLAXIS OF NAUSEA AND VOMITING
     Route: 042
     Dates: start: 20070227, end: 20070227
  11. PREDNISOLONE SODIUM METASULFOBENZOATE [Concomitant]
     Indication: PROPHYLAXIS OF NAUSEA AND VOMITING
     Route: 048
     Dates: start: 20070228, end: 20070301
  12. FUROSEMIDE [Concomitant]
     Route: 042
     Dates: start: 20070226, end: 20070226
  13. PEGFILGRASTIM [Concomitant]
     Route: 058
     Dates: start: 20070227, end: 20070227
  14. PRAZEPAM [Concomitant]
     Route: 048
     Dates: start: 20061201
  15. LACTULOSE [Concomitant]
     Route: 065
     Dates: end: 20070306
  16. SODIUM CHLORIDE [Concomitant]
     Route: 065
     Dates: end: 20070306
  17. SUCRALFATE [Concomitant]
     Route: 065
     Dates: start: 20070101, end: 20070306

REACTIONS (2)
  - PANCYTOPENIA [None]
  - PYREXIA [None]
